FAERS Safety Report 5641942-9 (Version None)
Quarter: 2008Q1

REPORT INFORMATION
  Report Type: 
  Country: None (occurrence: None)
  Receive Date: 20080225
  Receipt Date: 20080206
  Transmission Date: 20080703
  Serious: Yes (Disabling)
  Sender: FDA-Public Use
  Company Number: 8029842

PATIENT
  Age: 68 Year
  Sex: Female

DRUGS (13)
  1. PREDNISOLONE [Suspect]
     Indication: RHEUMATOID ARTHRITIS
     Dosage: 2.5 MG
  2. HUMIRA [Suspect]
     Indication: RHEUMATOID ARTHRITIS
     Dosage: 40 MG 1/2W SC
     Route: 058
     Dates: start: 20060601
  3. ADALAT [Concomitant]
  4. ASPIRIN [Concomitant]
  5. DAKTACORT /00449501/ [Concomitant]
  6. DICLOFENAC SODIUM [Concomitant]
  7. FERROUS SULFATE TAB [Concomitant]
  8. FOLIC ACID [Concomitant]
  9. INDAPAMIDE [Concomitant]
  10. METHOTREXATE [Concomitant]
  11. MULTIVITAMIN /00831701/ [Concomitant]
  12. OMEPRAZOLE [Concomitant]
  13. SIMVASTATIN [Concomitant]

REACTIONS (5)
  - FOLLICULITIS [None]
  - PAIN [None]
  - RASH MACULO-PAPULAR [None]
  - RASH PAPULAR [None]
  - URTICARIA [None]
